FAERS Safety Report 4632790-7 (Version None)
Quarter: 2005Q2

REPORT INFORMATION
  Report Type: 
  Country: None (occurrence: None)
  Receive Date: 20050408
  Receipt Date: 20050408
  Transmission Date: 20051028
  Serious: No
  Sender: FDA-Public Use
  Company Number: None

PATIENT
  Sex: Male

DRUGS (1)
  1. WARFARIN SODIUM [Suspect]
     Indication: ATRIAL FIBRILLATION
     Dosage: 5 MG OR 7.5 MG AS DIRECTED
     Dates: start: 20040101

REACTIONS (3)
  - DRUG EFFECT DECREASED [None]
  - INTERNATIONAL NORMALISED RATIO ABNORMAL [None]
  - PHARMACEUTICAL PRODUCT COMPLAINT [None]
